FAERS Safety Report 8950315 (Version 1)
Quarter: 2012Q4

REPORT INFORMATION
  Report Type: Spontaneous
  Country: US (occurrence: None)
  Receive Date: 20121022
  Receipt Date: 20121022
  Transmission Date: 20130627
  Serious: No
  Sender: FDA-Public Use
  Company Number: None

PATIENT
  Sex: Male
  Weight: 35.7 kg

DRUGS (2)
  1. CLOPIDOGREL [Suspect]
     Indication: CORONARY STENT PLACEMENT
     Route: 048
     Dates: start: 20120211, end: 20120907
  2. ENOXAPARIN [Suspect]
     Indication: DVT PROPHYLAXIS
     Route: 058
     Dates: start: 20120806, end: 20120907

REACTIONS (5)
  - Fall [None]
  - Head injury [None]
  - Subarachnoid haemorrhage [None]
  - Haemorrhage [None]
  - Subdural haematoma [None]
